FAERS Safety Report 7335430-1 (Version None)
Quarter: 2011Q1

REPORT INFORMATION
  Report Type: 
  Country: None (occurrence: None)
  Receive Date: 20110307
  Receipt Date: 20110225
  Transmission Date: 20110831
  Serious: Yes (Death)
  Sender: FDA-Public Use
  Company Number: FR-EISAI INC-E7273-00211-SPO-FR

PATIENT
  Sex: Female
  Weight: 56 kg

DRUGS (5)
  1. LYRICA [Concomitant]
     Indication: PRURITUS
     Route: 048
     Dates: start: 20100318, end: 20100420
  2. LEVOTHYROXINE SODIUM [Concomitant]
     Indication: HYPOTHYROIDISM
     Route: 048
     Dates: start: 20090525, end: 20101208
  3. TARGRETIN [Suspect]
     Route: 048
     Dates: start: 20100205, end: 20100318
  4. TARGRETIN [Suspect]
     Route: 048
     Dates: start: 20091218, end: 20100205
  5. TARGRETIN [Suspect]
     Route: 048
     Dates: start: 20100318, end: 20101125

REACTIONS (2)
  - NEOPLASM MALIGNANT [None]
  - HYPOTHYROIDISM [None]
